FAERS Safety Report 8522035-X (Version None)
Quarter: 2012Q3

REPORT INFORMATION
  Report Type: 
  Country: None (occurrence: None)
  Receive Date: 20120719
  Receipt Date: 20120709
  Transmission Date: 20120928
  Serious: Yes (Other)
  Sender: FDA-Public Use
  Company Number: JP-VERTEX PHARMACEUTICALS INC.-AE-2012-008970

PATIENT
  Age: 53 Year
  Sex: Male

DRUGS (10)
  1. TELAVIC (TELAPREVIR) [Suspect]
     Indication: HEPATITIS C
     Route: 048
     Dates: start: 20120418
  2. RIBAVIRIN [Concomitant]
     Route: 048
     Dates: start: 20120502, end: 20120509
  3. PEGINTERFERON ALFA-2B [Concomitant]
     Indication: HEPATITIS C
     Route: 058
     Dates: start: 20120418
  4. RIBAVIRIN [Concomitant]
     Indication: HEPATITIS C
     Route: 048
     Dates: start: 20120418, end: 20120501
  5. ENALAPRIL MALEATE [Concomitant]
     Route: 048
  6. PEGINTERFERON ALFA-2B [Concomitant]
     Route: 058
     Dates: start: 20120705
  7. NORVASC [Concomitant]
     Route: 048
  8. RIBAVIRIN [Concomitant]
     Route: 048
     Dates: start: 20120510
  9. BASEN [Concomitant]
     Route: 048
  10. ZETIA [Concomitant]
     Route: 048

REACTIONS (3)
  - HAEMOGLOBIN DECREASED [None]
  - BLOOD URIC ACID INCREASED [None]
  - RASH [None]
